FAERS Safety Report 5763552-5 (Version None)
Quarter: 2008Q2

REPORT INFORMATION
  Report Type: 
  Country: None (occurrence: None)
  Receive Date: 20080610
  Receipt Date: 20080530
  Transmission Date: 20081010
  Serious: Yes (Other)
  Sender: FDA-Public Use
  Company Number: US-JNJFOC-20080600668

PATIENT
  Sex: Male
  Weight: 79.38 kg

DRUGS (9)
  1. DURAGESIC-100 [Suspect]
     Route: 062
  2. DURAGESIC-100 [Suspect]
     Route: 062
  3. DURAGESIC-100 [Suspect]
     Indication: INTERVERTEBRAL DISC DEGENERATION
     Route: 062
  4. FENTANYL TRANSDERMAL SYSTEM [Suspect]
     Indication: INTERVERTEBRAL DISC DEGENERATION
     Route: 062
  5. HYDROCODONE [Concomitant]
     Indication: BREAKTHROUGH PAIN
     Dosage: 10/ 650 MG TWICE IN ONE DAY AS NEEDED
     Route: 048
  6. SOMA [Concomitant]
     Indication: MUSCLE SPASMS
     Route: 048
  7. XANAX [Concomitant]
     Indication: ANXIETY
     Route: 048
  8. PROPRANOLOL [Concomitant]
     Indication: HEART RATE
     Route: 048
  9. PROPRANOLOL [Concomitant]
     Indication: ANXIETY
     Route: 048

REACTIONS (8)
  - DEVICE FAILURE [None]
  - DRUG INEFFECTIVE [None]
  - GASTRIC DISORDER [None]
  - HYPERTENSION [None]
  - INAPPROPRIATE SCHEDULE OF DRUG ADMINISTRATION [None]
  - MUSCULOSKELETAL PAIN [None]
  - OEDEMA PERIPHERAL [None]
  - WRONG TECHNIQUE IN DRUG USAGE PROCESS [None]
